FAERS Safety Report 12492840 (Version 1)
Quarter: 2016Q2

REPORT INFORMATION
  Report Type: Spontaneous
  Country: US (occurrence: None)
  Receive Date: 20160623
  Receipt Date: 20160623
  Transmission Date: 20160815
  Serious: No
  Sender: FDA-Public Use
  Company Number: None

PATIENT
  Age: 66 Year
  Sex: Female

DRUGS (21)
  1. ACETAMINOPHEN. [Concomitant]
     Active Substance: ACETAMINOPHEN
  2. FENTANYL. [Concomitant]
     Active Substance: FENTANYL
  3. LISINOPRIL. [Concomitant]
     Active Substance: LISINOPRIL
  4. IVIG [Suspect]
     Active Substance: HUMAN IMMUNOGLOBULIN G
     Indication: INFECTION
     Route: 042
     Dates: start: 20160413, end: 20160417
  5. ASPIRIN. [Concomitant]
     Active Substance: ASPIRIN
  6. FUROSEMIDE. [Concomitant]
     Active Substance: FUROSEMIDE
  7. INSULIN ASPART [Concomitant]
     Active Substance: INSULIN ASPART
  8. LEVOTHYROXINE. [Concomitant]
     Active Substance: LEVOTHYROXINE
  9. MAGNESIUM SULFATE. [Concomitant]
     Active Substance: MAGNESIUM SULFATE
  10. MORPHINE [Concomitant]
     Active Substance: MORPHINE
  11. HEPARIN [Concomitant]
     Active Substance: HEPARIN SODIUM
  12. ATORVASTATIN [Concomitant]
     Active Substance: ATORVASTATIN
  13. POTASSIUM CHLORIDE. [Concomitant]
     Active Substance: POTASSIUM CHLORIDE
  14. ALLOPURINOL. [Concomitant]
     Active Substance: ALLOPURINOL
  15. AMLODIPINE [Concomitant]
     Active Substance: AMLODIPINE BESYLATE
  16. INSULIN GLARGINE [Concomitant]
     Active Substance: INSULIN GLARGINE
  17. DIPHENHYDROMINE [Concomitant]
  18. GABAPENTIN. [Concomitant]
     Active Substance: GABAPENTIN
  19. LABETALOL [Concomitant]
     Active Substance: LABETALOL\LABETALOL HYDROCHLORIDE
  20. METOPROLOL. [Concomitant]
     Active Substance: METOPROLOL
  21. SENNA [Concomitant]
     Active Substance: SENNA LEAF\SENNOSIDES\SENNOSIDES A AND B

REACTIONS (4)
  - Fluid overload [None]
  - Coronary artery disease [None]
  - Acute myocardial infarction [None]
  - Troponin increased [None]

NARRATIVE: CASE EVENT DATE: 20160414
